FAERS Safety Report 19380117 (Version 2)
Quarter: 2021Q3

REPORT INFORMATION
  Report Type: Report from Study
  Country: US (occurrence: US)
  Receive Date: 20210607
  Receipt Date: 20210710
  Transmission Date: 20211014
  Serious: No
  Sender: FDA-Public Use
  Company Number: NVSC2021US121012

PATIENT
  Age: 52 Year
  Sex: Male

DRUGS (2)
  1. ENTRESTO [Suspect]
     Active Substance: SACUBITRIL\VALSARTAN
     Indication: CARDIAC FAILURE CHRONIC
     Dosage: 1 DF, BID
     Route: 065
     Dates: start: 20201103
  2. ENTRESTO [Suspect]
     Active Substance: SACUBITRIL\VALSARTAN
     Indication: CARDIAC FAILURE CONGESTIVE

REACTIONS (6)
  - Blood pressure decreased [Recovering/Resolving]
  - Dyspnoea [Unknown]
  - Memory impairment [Not Recovered/Not Resolved]
  - Fatigue [Unknown]
  - Ejection fraction decreased [Unknown]
  - Blood pressure fluctuation [Unknown]

NARRATIVE: CASE EVENT DATE: 202011
